FAERS Safety Report 5304311-7 (Version None)
Quarter: 2007Q2

REPORT INFORMATION
  Report Type: 
  Country: None (occurrence: None)
  Receive Date: 20070423
  Receipt Date: 20070412
  Transmission Date: 20071010
  Serious: Yes (Other)
  Sender: FDA-Public Use
  Company Number: PHEH2007US03775

PATIENT
  Age: 57 Year
  Sex: Female

DRUGS (9)
  1. ZELNORM [Suspect]
     Indication: CONSTIPATION
     Dosage: 6 MG, BID
     Route: 048
     Dates: start: 20060701
  2. ARNICA MONTANA [Suspect]
     Dosage: 3 PELLETS BID
     Dates: start: 20070217, end: 20070308
  3. NEXIUM [Concomitant]
  4. ZYRTEC [Concomitant]
  5. MIRALAX [Concomitant]
  6. KEFLEX /UNK/ [Concomitant]
     Dates: end: 20070201
  7. AMBIEN [Concomitant]
     Dates: end: 20070201
  8. OXYCONTIN [Concomitant]
     Dates: end: 20070301
  9. VICODIN [Concomitant]
     Dates: end: 20070301

REACTIONS (4)
  - BLOOD PRESSURE INCREASED [None]
  - CARDIAC DISORDER [None]
  - DYSPNOEA [None]
  - PLASTIC SURGERY [None]
